FAERS Safety Report 8166349 (Version 7)
Quarter: 2012Q4

REPORT INFORMATION
  Report Type: 
  Country: IN (occurrence: US)
  Receive Date: 20111003
  Receipt Date: 20121220
  Transmission Date: 20130627
  Serious: Yes (Hospitalization)
  Sender: FDA-Public Use
  Company Number: US-BAYER-2011-047623

PATIENT
  Age: 82 Year
  Sex: Male
  Weight: 58.5 kg

DRUGS (16)
  1. SORAFENIB (RAF KINASE INHIBITOR) [Suspect]
     Indication: THYROID CANCER
     Dosage: 400 mg, BID
     Route: 048
     Dates: start: 20110414, end: 20110512
  2. SORAFENIB (RAF KINASE INHIBITOR) [Suspect]
     Indication: THYROID CANCER
     Dosage: 400 mg, BID
     Route: 048
     Dates: start: 20110512, end: 20110527
  3. SORAFENIB (RAF KINASE INHIBITOR) [Suspect]
     Indication: THYROID CANCER
     Dosage: 200 mg QD + 400 mg QD, cycle 9
     Route: 048
     Dates: start: 20110609, end: 20110718
  4. PLACEBO [Suspect]
     Indication: THYROID CANCER
     Dosage: UNK
  5. ASPIRIN [Concomitant]
     Indication: HYPERLIPIDEMIA
     Dosage: daily dose 81 mg
     Route: 048
     Dates: start: 20070422
  6. SYNTHROID [Concomitant]
     Indication: HYPOTHYROIDISM
     Dosage: daily dose 175 mcg
     Route: 048
     Dates: start: 20090127
  7. NAPROXEN SODIUM [Concomitant]
     Indication: RIB PAIN
     Dosage: 440 mcg PRN
     Route: 048
     Dates: start: 20001022
  8. PRAVACHOL [Concomitant]
     Indication: HYPERLIPIDEMIA
     Dosage: Daily dose 20 mg
     Route: 048
     Dates: start: 20000622
  9. PRINIVIL [Concomitant]
     Indication: HYPERTENSION
     Dosage: Daily dose 40 mg
     Route: 048
     Dates: start: 20001022
  10. TYLENOL [PARACETAMOL] [Concomitant]
     Indication: RIB PAIN
     Dosage: 325 mg, PRN
     Route: 048
     Dates: start: 19901022
  11. VITAMIN D3 [Concomitant]
     Indication: SUPPLEMENTATION THERAPY
     Dosage: Daily dose 7000 u
     Route: 048
     Dates: start: 20090504, end: 20101028
  12. VITAMIN D3 [Concomitant]
     Indication: SUPPLEMENTATION THERAPY
     Dosage: Daily dose 1000 u
     Route: 048
     Dates: start: 20101029
  13. ROBITUSSIN EX [Concomitant]
     Indication: PRODUCTIVE COUGH
     Dosage: one tsp, PRN
     Route: 048
     Dates: start: 20110406, end: 20110421
  14. AZITHROMYCIN [Concomitant]
     Indication: BRONCHITIS
     Dosage: Daily dose 500 mg
     Route: 048
     Dates: start: 20110406, end: 20110410
  15. MEGACE [Concomitant]
     Indication: LOSS OF WEIGHT
     Dosage: 4 DF, QD
     Route: 048
     Dates: start: 20110414, end: 20110730
  16. AMBIEN [Concomitant]
     Indication: INSOMNIA
     Dosage: UNK
     Dates: start: 20110606

REACTIONS (3)
  - Chronic respiratory failure [Recovered/Resolved]
  - Dehydration [Recovered/Resolved]
  - Dyspnoea [Recovered/Resolved]
